FAERS Safety Report 5396559-0 (Version None)
Quarter: 2007Q3

REPORT INFORMATION
  Report Type: 
  Country: None (occurrence: None)
  Receive Date: 20070725
  Receipt Date: 20070719
  Transmission Date: 20080115
  Serious: No
  Sender: FDA-Public Use
  Company Number: JP-ASTRAZENECA-2007AP04149

PATIENT
  Age: 26097 Day
  Sex: Female
  Weight: 52 kg

DRUGS (9)
  1. IRESSA [Suspect]
     Indication: LUNG ADENOCARCINOMA
     Route: 048
     Dates: start: 20070303, end: 20070412
  2. IRESSA [Suspect]
     Route: 048
     Dates: start: 20070704, end: 20070711
  3. LOXONIN [Concomitant]
     Indication: BACK PAIN
     Route: 048
     Dates: end: 20070412
  4. LOXONIN [Concomitant]
     Indication: CHEST PAIN
     Route: 048
     Dates: end: 20070412
  5. MUCOSTA [Concomitant]
     Indication: GASTRITIS
     Route: 048
     Dates: end: 20070412
  6. CARBOPLATIN [Concomitant]
     Indication: LUNG NEOPLASM MALIGNANT
     Dates: start: 20070110, end: 20070110
  7. CARBOPLATIN [Concomitant]
     Dates: start: 20070201, end: 20070201
  8. DOCETAXEL [Concomitant]
     Indication: LUNG NEOPLASM MALIGNANT
     Dates: start: 20070110, end: 20070110
  9. DOCETAXEL [Concomitant]
     Dates: start: 20070201, end: 20070201

REACTIONS (1)
  - HEPATIC FUNCTION ABNORMAL [None]
